FAERS Safety Report 5819838-9 (Version None)
Quarter: 2008Q3

REPORT INFORMATION
  Report Type: 
  Country: None (occurrence: None)
  Receive Date: 20080717
  Receipt Date: 20080709
  Transmission Date: 20090109
  Serious: Yes (Other)
  Sender: FDA-Public Use
  Company Number: 2008SP013994

PATIENT
  Age: 47 Year
  Sex: Female
  Weight: 102.5129 kg

DRUGS (2)
  1. PEG-INTRON [Suspect]
     Indication: HEPATITIS C
     Dosage: SC
     Route: 058
     Dates: start: 20080327
  2. RIBASPHERE [Suspect]
     Indication: HEPATITIS C
     Dosage: PO
     Route: 048
     Dates: start: 20080327

REACTIONS (13)
  - ASTHENIA [None]
  - AURICULAR SWELLING [None]
  - DEHYDRATION [None]
  - EAR INFECTION [None]
  - LIP BLISTER [None]
  - OEDEMA PERIPHERAL [None]
  - PERIPHERAL COLDNESS [None]
  - PURULENCE [None]
  - PYREXIA [None]
  - RASH MACULAR [None]
  - SKIN DISCOLOURATION [None]
  - WEIGHT DECREASED [None]
  - WHITE BLOOD CELL COUNT DECREASED [None]
